FAERS Safety Report 7954281-8 (Version None)
Quarter: 2011Q4

REPORT INFORMATION
  Report Type: 
  Country: None (occurrence: None)
  Receive Date: 20111202
  Receipt Date: 20111130
  Transmission Date: 20120403
  Serious: No
  Sender: FDA-Public Use
  Company Number: US-PFIZER INC-2011292689

PATIENT
  Sex: Female
  Weight: 72.562 kg

DRUGS (4)
  1. ADVIL LIQUI-GELS [Suspect]
     Indication: PAIN
     Dosage: 400MG (TWO OF 200MG) , 2X/DAY
     Route: 048
     Dates: end: 20110701
  2. ADVIL LIQUI-GELS [Suspect]
     Dosage: 400MG (TWO OF 200MG) , 2X/DAY
     Route: 048
     Dates: start: 20111101, end: 20111101
  3. ATENOLOL [Concomitant]
     Dosage: 50 MG, 1X/DAY
  4. AMLODIPINE [Concomitant]
     Dosage: 5 MG, 1X/DAY

REACTIONS (1)
  - SKIN DISCOLOURATION [None]
